FAERS Safety Report 21467022 (Version 2)
Quarter: 2022Q4

REPORT INFORMATION
  Report Type: Report from Study
  Country: US (occurrence: US)
  Receive Date: 20221017
  Receipt Date: 20221028
  Transmission Date: 20230113
  Serious: No
  Sender: FDA-Public Use
  Company Number: US-ABBVIE-4145135

PATIENT
  Sex: Male

DRUGS (6)
  1. IMBRUVICA [Suspect]
     Active Substance: IBRUTINIB
     Indication: Waldenstrom^s macroglobulinaemia
     Route: 048
  2. IMBRUVICA [Suspect]
     Active Substance: IBRUTINIB
     Indication: Waldenstrom^s macroglobulinaemia
     Route: 048
  3. Moderna [Concomitant]
     Indication: COVID-19 immunisation
     Dosage: FREQUENCY- 1-1-ONCE?FIRST DOSE
     Route: 030
     Dates: start: 20210201, end: 20210201
  4. Moderna [Concomitant]
     Indication: COVID-19 immunisation
     Dosage: FREQUENCY- 1-1-ONCE?SECOND DOSE
     Route: 030
     Dates: start: 20210301, end: 20210301
  5. Moderna [Concomitant]
     Indication: COVID-19 immunisation
     Dosage: FREQUENCY- 1-1-ONCE?THIRD DOSE/FIRST BOOSTER DOSE
     Route: 030
     Dates: start: 20220201, end: 20220201
  6. Moderna [Concomitant]
     Indication: COVID-19 immunisation
     Dosage: FREQUENCY- 1-1-ONCE?SECOND BOOSTER DOSE
     Route: 030
     Dates: start: 202206, end: 202206

REACTIONS (1)
  - Blood iron decreased [Recovering/Resolving]
